FAERS Safety Report 7400914-4 (Version None)
Quarter: 2011Q2

REPORT INFORMATION
  Report Type: 
  Country: None (occurrence: None)
  Receive Date: 20110407
  Receipt Date: 20110329
  Transmission Date: 20111010
  Serious: Yes (Hospitalization)
  Sender: FDA-Public Use
  Company Number: IT-NOVEN-11IT002158

PATIENT
  Sex: Male

DRUGS (3)
  1. UNIPRIL                            /00574902/ [Suspect]
     Indication: PRODUCT USED FOR UNKNOWN INDICATION
     Dosage: 1 WHOLE BOX OF UNIPRIL
     Route: 048
     Dates: start: 20100918, end: 20100918
  2. CHLORPROMAZINE [Suspect]
     Indication: ABNORMAL BEHAVIOUR
     Dosage: AN UNKNOWN AMOUNT OF PROZIN 25 MG
     Route: 048
     Dates: start: 20100918, end: 20100918
  3. PAROXETINE HCL [Suspect]
     Indication: ABNORMAL BEHAVIOUR
     Dosage: 20 MG, 1 WHOLE BOX OF DAPAROX
     Route: 048
     Dates: start: 20100918, end: 20100918

REACTIONS (3)
  - ATRIAL FIBRILLATION [None]
  - HEAD INJURY [None]
  - DRUG ABUSE [None]
